FAERS Safety Report 11856675 (Version 1)
Quarter: 2015Q4

REPORT INFORMATION
  Report Type: Spontaneous
  Country: DE (occurrence: DE)
  Receive Date: 20151221
  Receipt Date: 20151221
  Transmission Date: 20160305
  Serious: Yes (Other)
  Sender: FDA-Public Use
  Company Number: DE-MUNDIPHARMA DS AND PHARMACOVIGILANCE-DEU-2015-0017319

PATIENT
  Age: 74 Year
  Sex: Female

DRUGS (8)
  1. TARGIN 10/5 MG RETARDTABLETTEN [Suspect]
     Active Substance: NALOXONE HYDROCHLORIDE\OXYCODONE HYDROCHLORIDE
     Dosage: UNK, SEE TEXT
     Route: 048
     Dates: start: 2000
  2. TARGIN 10/5 MG RETARDTABLETTEN [Suspect]
     Active Substance: NALOXONE HYDROCHLORIDE\OXYCODONE HYDROCHLORIDE
     Indication: MUSCULOSKELETAL PAIN
     Dosage: 10MG/5MG, AM
     Route: 048
     Dates: start: 2015
  3. ZOPIKLON [Concomitant]
     Active Substance: ZOPICLONE
     Dosage: 1 DF, DAILY
     Route: 065
  4. MST 10 MG MUNDIPHARMA [Concomitant]
     Indication: MUSCULOSKELETAL PAIN
  5. TARGIN 10/5 MG RETARDTABLETTEN [Suspect]
     Active Substance: NALOXONE HYDROCHLORIDE\OXYCODONE HYDROCHLORIDE
     Indication: PAIN
     Dosage: 10MG/5MG, TID
     Route: 048
     Dates: start: 201510
  6. TARGIN 10/5 MG RETARDTABLETTEN [Suspect]
     Active Substance: NALOXONE HYDROCHLORIDE\OXYCODONE HYDROCHLORIDE
     Indication: MUSCULOSKELETAL PAIN
     Dosage: 10MG/5MG, BID
     Route: 048
     Dates: start: 2015, end: 2015
  7. ASPIRIN. [Concomitant]
     Active Substance: ASPIRIN
     Indication: PRODUCT USED FOR UNKNOWN INDICATION
     Dosage: UNK, SEE TEXT
     Route: 065
     Dates: start: 2005, end: 201512
  8. MST 10 MG MUNDIPHARMA [Concomitant]
     Indication: PAIN
     Dosage: 10 MG, DAILY
     Route: 048
     Dates: start: 201510

REACTIONS (4)
  - Epistaxis [Recovered/Resolved]
  - Decreased appetite [Unknown]
  - Drug ineffective [Not Recovered/Not Resolved]
  - Weight decreased [Unknown]

NARRATIVE: CASE EVENT DATE: 2015
